FAERS Safety Report 26084250 (Version 1)
Quarter: 2025Q4

REPORT INFORMATION
  Report Type: Report from Study
  Country: EU (occurrence: EU)
  Receive Date: 20251124
  Receipt Date: 20251124
  Transmission Date: 20260118
  Serious: Yes (Hospitalization)
  Sender: MYLAN
  Company Number: None

PATIENT
  Age: 14 Year
  Sex: Male
  Weight: 37 kg

DRUGS (16)
  1. METHOTREXATE [Suspect]
     Active Substance: METHOTREXATE
     Indication: Osteosarcoma
     Dosage: 15 GRAM (15?G (12 G/M? BODY SURFACE AREA))
  2. METHOTREXATE [Suspect]
     Active Substance: METHOTREXATE
     Dosage: 15 GRAM (15?G (12 G/M? BODY SURFACE AREA))
     Route: 042
  3. METHOTREXATE [Suspect]
     Active Substance: METHOTREXATE
     Dosage: 15 GRAM (15?G (12 G/M? BODY SURFACE AREA))
     Route: 042
  4. METHOTREXATE [Suspect]
     Active Substance: METHOTREXATE
     Dosage: 15 GRAM (15?G (12 G/M? BODY SURFACE AREA))
  5. TRAMADOL [Concomitant]
     Active Substance: TRAMADOL
     Indication: Pain
     Dosage: UNK, TID (THREE TIMES DAILY AT FIXED TIMES)
     Dates: start: 20250821, end: 20250824
  6. TRAMADOL [Concomitant]
     Active Substance: TRAMADOL
     Dosage: UNK, TID (THREE TIMES DAILY AT FIXED TIMES)
     Route: 048
     Dates: start: 20250821, end: 20250824
  7. TRAMADOL [Concomitant]
     Active Substance: TRAMADOL
     Dosage: UNK, TID (THREE TIMES DAILY AT FIXED TIMES)
     Route: 048
     Dates: start: 20250821, end: 20250824
  8. TRAMADOL [Concomitant]
     Active Substance: TRAMADOL
     Dosage: UNK, TID (THREE TIMES DAILY AT FIXED TIMES)
     Dates: start: 20250821, end: 20250824
  9. LEVOLEUCOVORIN CALCIUM [Concomitant]
     Active Substance: LEVOLEUCOVORIN CALCIUM
     Indication: Osteosarcoma
     Dosage: UNK
     Dates: start: 20250822, end: 20250822
  10. LEVOLEUCOVORIN CALCIUM [Concomitant]
     Active Substance: LEVOLEUCOVORIN CALCIUM
     Dosage: UNK
     Route: 042
     Dates: start: 20250822, end: 20250822
  11. LEVOLEUCOVORIN CALCIUM [Concomitant]
     Active Substance: LEVOLEUCOVORIN CALCIUM
     Dosage: UNK
     Route: 042
     Dates: start: 20250822, end: 20250822
  12. LEVOLEUCOVORIN CALCIUM [Concomitant]
     Active Substance: LEVOLEUCOVORIN CALCIUM
     Dosage: UNK
     Dates: start: 20250822, end: 20250822
  13. GLECAPREVIR\PIBRENTASVIR [Concomitant]
     Active Substance: GLECAPREVIR\PIBRENTASVIR
     Indication: Chronic hepatitis C
     Dosage: UNK
  14. GLECAPREVIR\PIBRENTASVIR [Concomitant]
     Active Substance: GLECAPREVIR\PIBRENTASVIR
     Dosage: UNK
     Route: 065
  15. GLECAPREVIR\PIBRENTASVIR [Concomitant]
     Active Substance: GLECAPREVIR\PIBRENTASVIR
     Dosage: UNK
     Route: 065
  16. GLECAPREVIR\PIBRENTASVIR [Concomitant]
     Active Substance: GLECAPREVIR\PIBRENTASVIR
     Dosage: UNK

REACTIONS (5)
  - Hypertransaminasaemia [Recovered/Resolved]
  - Agitation [Recovered/Resolved]
  - Headache [Recovered/Resolved]
  - Nausea [Recovering/Resolving]
  - Vomiting [Recovered/Resolved]

NARRATIVE: CASE EVENT DATE: 20250822
